FAERS Safety Report 24151627 (Version 1)
Quarter: 2024Q3

REPORT INFORMATION
  Report Type: Spontaneous
  Country: US (occurrence: None)
  Receive Date: 20240729
  Receipt Date: 20240729
  Transmission Date: 20241016
  Serious: Yes (Life-Threatening, Hospitalization)
  Sender: Public
  Company Number: None

PATIENT
  Age: 56 Year
  Sex: Female
  Weight: 67.5 kg

DRUGS (3)
  1. MELOXICAM [Suspect]
     Active Substance: MELOXICAM
     Indication: Joint range of motion decreased
     Dosage: FREQUENCY : DAILY;?
     Route: 048
     Dates: start: 20210609, end: 20231009
  2. NASACORT ALLERGY NASAL SPRAY [Concomitant]
  3. CENTRUM SILVER FOR WOMEN MULTIVITAMINS [Concomitant]

REACTIONS (2)
  - Large intestine perforation [None]
  - Sepsis [None]

NARRATIVE: CASE EVENT DATE: 20230804
